FAERS Safety Report 6209478-4 (Version None)
Quarter: 2009Q2

REPORT INFORMATION
  Report Type: 
  Country: None (occurrence: None)
  Receive Date: 20090601
  Receipt Date: 20081015
  Transmission Date: 20091009
  Serious: No
  Sender: FDA-Public Use
  Company Number: A0752171A

PATIENT
  Age: 18 Month
  Sex: Male

DRUGS (2)
  1. AMOXICILLIN AND CLAVULANATE POTASSIUM [Suspect]
     Indication: EAR INFECTION
     Dosage: .75TSP TWICE PER DAY
     Route: 048
     Dates: start: 20081010
  2. NO CONCURRENT MEDICATION [Concomitant]

REACTIONS (1)
  - INCORRECT STORAGE OF DRUG [None]
